FAERS Safety Report 4266741-4 (Version None)
Quarter: 2004Q1

REPORT INFORMATION
  Report Type: 
  Country: None (occurrence: None)
  Receive Date: 20040108
  Receipt Date: 20040102
  Transmission Date: 20041129
  Serious: Yes (Hospitalization)
  Sender: FDA-Public Use
  Company Number: FR-GLAXOSMITHKLINE-B0318780A

PATIENT
  Age: 69 Year
  Sex: Male
  Weight: 63 kg

DRUGS (7)
  1. AUGMENTIN '125' [Suspect]
     Indication: TRACHEOBRONCHITIS
     Route: 048
     Dates: start: 20031112, end: 20031115
  2. ACETAMINOPHEN [Suspect]
     Indication: TRACHEOBRONCHITIS
     Route: 048
     Dates: start: 20031112, end: 20031116
  3. MUCOMYST [Suspect]
     Indication: TRACHEOBRONCHITIS
     Route: 048
     Dates: start: 20031112, end: 20031116
  4. ARAVA [Concomitant]
     Dosage: 10MG PER DAY
     Route: 048
     Dates: end: 20031116
  5. ROCEPHIN [Concomitant]
     Indication: TRACHEOBRONCHITIS
     Dates: start: 20031001
  6. MUCOMYST [Concomitant]
     Dates: start: 20031001
  7. SOLU-MEDROL [Concomitant]
     Indication: TRACHEOBRONCHITIS
     Dates: start: 20031001

REACTIONS (7)
  - DERMATITIS EXFOLIATIVE [None]
  - LYMPHADENOPATHY [None]
  - LYMPHOPROLIFERATIVE DISORDER [None]
  - PYREXIA [None]
  - RASH ERYTHEMATOUS [None]
  - SPLENOMEGALY [None]
  - TOXIC SKIN ERUPTION [None]
